FAERS Safety Report 9038173 (Version 1)
Quarter: 2013Q1

REPORT INFORMATION
  Report Type: Spontaneous
  Country: US (occurrence: US)
  Receive Date: 20130129
  Receipt Date: 20130129
  Transmission Date: 20140127
  Serious: Yes (Other)
  Sender: FDA-Public Use
  Company Number: US-GLAXOSMITHKLINE-A0974236A

PATIENT
  Age: 47 Year
  Sex: Female
  Weight: 51.8 kg

DRUGS (2)
  1. WELLBUTRIN XL [Suspect]
     Indication: DEPRESSION
     Dosage: 150MG PER DAY
     Route: 048
     Dates: start: 2010, end: 2010
  2. WELLBUTRIN SR [Suspect]
     Indication: DEPRESSION
     Route: 048

REACTIONS (2)
  - Pruritus [Unknown]
  - Urticaria [Unknown]
